FAERS Safety Report 8442409-5 (Version None)
Quarter: 2012Q2

REPORT INFORMATION
  Report Type: 
  Country: None (occurrence: None)
  Receive Date: 20120615
  Receipt Date: 20120113
  Transmission Date: 20120825
  Serious: No
  Sender: FDA-Public Use
  Company Number: US-NOVEN-12US003932

PATIENT
  Sex: Female
  Weight: 25.85 kg

DRUGS (1)
  1. DAYTRANA [Suspect]
     Indication: ATTENTION DEFICIT/HYPERACTIVITY DISORDER
     Dosage: 10 MG, ONCE DAILY IN THE MORNING
     Dates: start: 20111116, end: 20111230

REACTIONS (5)
  - PRODUCT QUALITY ISSUE [None]
  - NAUSEA [None]
  - SOMNOLENCE [None]
  - HEADACHE [None]
  - DRUG ADMINISTRATION ERROR [None]
